FAERS Safety Report 11757280 (Version 1)
Quarter: 2015Q4

REPORT INFORMATION
  Report Type: Report from Study
  Country: AU (occurrence: AU)
  Receive Date: 20151120
  Receipt Date: 20151120
  Transmission Date: 20160304
  Serious: Yes (Hospitalization)
  Sender: FDA-Public Use
  Company Number: PHHO2013AU017737

PATIENT
  Age: 61 Year
  Sex: Male
  Weight: 128.2 kg

DRUGS (6)
  1. OFATUMUMAB [Suspect]
     Active Substance: OFATUMUMAB
     Indication: CHRONIC LYMPHOCYTIC LEUKAEMIA
     Dosage: 1000 MG (EVERY 8 WEEKS)
     Route: 042
     Dates: start: 20110116, end: 20131126
  2. PREDNISOLONE. [Suspect]
     Active Substance: PREDNISOLONE
     Dosage: 37.5 MG, 1D
     Route: 048
     Dates: start: 20130929, end: 20131009
  3. PREDNISOLONE. [Suspect]
     Active Substance: PREDNISOLONE
     Indication: RHINITIS
     Dosage: 50 MG, 1D
     Route: 048
     Dates: start: 20130917, end: 20130928
  4. PREDNISOLONE. [Suspect]
     Active Substance: PREDNISOLONE
     Dosage: 12.5 UNK, UNK
     Route: 006
     Dates: start: 20131031, end: 20131031
  5. PREDNISOLONE. [Suspect]
     Active Substance: PREDNISOLONE
     Dosage: 25 MG, 1D
     Route: 048
     Dates: start: 20131010, end: 20131020
  6. PREDNISOLONE. [Suspect]
     Active Substance: PREDNISOLONE
     Dosage: 7.5 MG, 1D
     Route: 048
     Dates: start: 20131018, end: 20131020

REACTIONS (1)
  - Glucose tolerance impaired [Recovered/Resolved]

NARRATIVE: CASE EVENT DATE: 20131017
